APPROVED DRUG PRODUCT: SAVELLA
Active Ingredient: MILNACIPRAN HYDROCHLORIDE
Strength: 25MG
Dosage Form/Route: TABLET;ORAL
Application: N022256 | Product #002 | TE Code: AB
Applicant: ABBVIE INC
Approved: Jan 14, 2009 | RLD: Yes | RS: No | Type: RX

PATENTS:
Patent 7994220 | Expires: Sep 19, 2029